FAERS Safety Report 21897182 (Version 2)
Quarter: 2023Q1

REPORT INFORMATION
  Report Type: Spontaneous
  Country: US (occurrence: None)
  Receive Date: 20230123
  Receipt Date: 20230127
  Transmission Date: 20230417
  Serious: Yes (Hospitalization)
  Sender: FDA-Public Use
  Company Number: US-ROCHE-3267697

PATIENT
  Sex: Female

DRUGS (9)
  1. OCREVUS [Suspect]
     Active Substance: OCRELIZUMAB
     Indication: Progressive relapsing multiple sclerosis
     Route: 042
     Dates: start: 20191202
  2. IBUPROFEN [Concomitant]
     Active Substance: IBUPROFEN
  3. NUEDEXTA [Concomitant]
     Active Substance: DEXTROMETHORPHAN HYDROBROMIDE\QUINIDINE SULFATE
  4. OXYBUTYNIN [Concomitant]
     Active Substance: OXYBUTYNIN
  5. ERGOCALCIFEROL [Concomitant]
     Active Substance: ERGOCALCIFEROL
  6. TECFIDERA [Concomitant]
     Active Substance: DIMETHYL FUMARATE
  7. AUBAGIO [Concomitant]
     Active Substance: TERIFLUNOMIDE
  8. AVONEX [Concomitant]
     Active Substance: INTERFERON BETA-1A
  9. REBIF [Concomitant]
     Active Substance: INTERFERON BETA-1A

REACTIONS (4)
  - Urinary tract infection [Unknown]
  - Multiple sclerosis [Unknown]
  - Limb discomfort [Unknown]
  - Pain in extremity [Unknown]
